FAERS Safety Report 22121867 (Version 2)
Quarter: 2023Q2

REPORT INFORMATION
  Report Type: Spontaneous
  Country: GB (occurrence: GB)
  Receive Date: 20230321
  Receipt Date: 20230418
  Transmission Date: 20230722
  Serious: Yes (Other)
  Sender: FDA-Public Use
  Company Number: GB-JNJFOC-20230325952

PATIENT

DRUGS (1)
  1. CONCERTA [Suspect]
     Active Substance: METHYLPHENIDATE HYDROCHLORIDE
     Indication: Attention deficit hyperactivity disorder
     Route: 065

REACTIONS (6)
  - Post viral fatigue syndrome [Unknown]
  - Drug tolerance increased [Unknown]
  - Product dose omission issue [Unknown]
  - Emotional disorder [Unknown]
  - Drug ineffective [Unknown]
  - Depression [Unknown]
